FAERS Safety Report 24915122 (Version 1)
Quarter: 2025Q1

REPORT INFORMATION
  Report Type: Spontaneous
  Country: JP (occurrence: JP)
  Receive Date: 20250203
  Receipt Date: 20250203
  Transmission Date: 20250408
  Serious: Yes (Death)
  Sender: EXELIXIS
  Company Number: JP-TAKEDA-2025TJP001121

PATIENT
  Age: 52 Year

DRUGS (1)
  1. CABOMETYX [Suspect]
     Active Substance: CABOZANTINIB S-MALATE
     Indication: Product used for unknown indication
     Route: 065
     Dates: start: 20240401

REACTIONS (2)
  - Pleural effusion [Fatal]
  - Therapeutic product effect incomplete [Unknown]
